FAERS Safety Report 8221764-5 (Version None)
Quarter: 2012Q1

REPORT INFORMATION
  Report Type: 
  Country: None (occurrence: None)
  Receive Date: 20120320
  Receipt Date: 20120320
  Transmission Date: 20120608
  Serious: Yes (Life-Threatening)
  Sender: FDA-Public Use
  Company Number: None

PATIENT
  Age: 71 Year
  Sex: Female
  Weight: 69.399 kg

DRUGS (1)
  1. ATIVAN [Suspect]
     Indication: PANIC ATTACK
     Dosage: .5 MG
     Dates: start: 19860101, end: 20120319

REACTIONS (1)
  - MYELODYSPLASTIC SYNDROME [None]
